FAERS Safety Report 6823774-9 (Version None)
Quarter: 2010Q3

REPORT INFORMATION
  Report Type: 
  Country: None (occurrence: None)
  Receive Date: 20100708
  Receipt Date: 20060906
  Transmission Date: 20110219
  Serious: No
  Sender: FDA-Public Use
  Company Number: US-PFIZER INC-2006109778

PATIENT
  Sex: Female
  Weight: 55.79 kg

DRUGS (8)
  1. CHANTIX [Suspect]
     Indication: SMOKING CESSATION THERAPY
     Route: 048
     Dates: start: 20060826, end: 20060903
  2. TERIPARATIDE [Concomitant]
     Dates: end: 20060101
  3. SYNTHROID [Concomitant]
  4. ZOCOR [Concomitant]
  5. VALSARTAN [Concomitant]
  6. PAROXETINE HCL [Concomitant]
  7. NABUMETONE [Concomitant]
  8. ACETYLSALICYLIC ACID [Concomitant]

REACTIONS (3)
  - ABDOMINAL DISCOMFORT [None]
  - INSOMNIA [None]
  - SLEEP DISORDER [None]
